FAERS Safety Report 7042107-9 (Version None)
Quarter: 2010Q4

REPORT INFORMATION
  Report Type: 
  Country: None (occurrence: None)
  Receive Date: 20101013
  Receipt Date: 20100809
  Transmission Date: 20110411
  Serious: No
  Sender: FDA-Public Use
  Company Number: US-ASTRAZENECA-2010SE37220

PATIENT
  Age: 68 Year
  Sex: Female

DRUGS (5)
  1. SYMBICORT [Suspect]
     Indication: COUGH
     Dosage: 160/4.5 TWO PUFFS TWICE A DAY
     Route: 055
     Dates: start: 20100801, end: 20100101
  2. LISINOPRIL [Suspect]
     Route: 048
  3. LISINOPRIL [Suspect]
     Route: 048
  4. MOBIC [Concomitant]
  5. BENZONATE PEARLS [Concomitant]

REACTIONS (3)
  - BLOOD PRESSURE INCREASED [None]
  - DRUG INEFFECTIVE [None]
  - MUSCLE DISORDER [None]
